FAERS Safety Report 8537433-8 (Version None)
Quarter: 2012Q3

REPORT INFORMATION
  Report Type: 
  Country: None (occurrence: None)
  Receive Date: 20120725
  Receipt Date: 20120719
  Transmission Date: 20120928
  Serious: Yes (Other)
  Sender: FDA-Public Use
  Company Number: US-PFIZER INC-2012021925

PATIENT
  Sex: Female
  Weight: 68 kg

DRUGS (3)
  1. XANAX [Suspect]
     Dosage: UNK
     Route: 048
     Dates: end: 20120701
  2. ALPRAZOLAM [Suspect]
     Dosage: 1 MG, 3X/DAY
     Dates: start: 20120101
  3. XANAX [Suspect]
     Dosage: 1 MG, 3X/DAY
     Dates: end: 20120101

REACTIONS (21)
  - ABASIA [None]
  - CRYING [None]
  - PRURITUS [None]
  - MYOCARDIAL INFARCTION [None]
  - ANXIETY [None]
  - NERVOUSNESS [None]
  - PANIC REACTION [None]
  - DEPRESSION [None]
  - PHYSICAL ASSAULT [None]
  - HOSTILITY [None]
  - DECREASED APPETITE [None]
  - FEELING ABNORMAL [None]
  - PAIN [None]
  - MENTAL DISORDER [None]
  - THROMBOSIS [None]
  - HYPERTENSION [None]
  - MALAISE [None]
  - AGGRESSION [None]
  - DYSPNOEA [None]
  - PALPITATIONS [None]
  - MOOD ALTERED [None]
